FAERS Safety Report 8007863-1 (Version None)
Quarter: 2011Q4

REPORT INFORMATION
  Report Type: 
  Country: None (occurrence: None)
  Receive Date: 20111222
  Receipt Date: 20111222
  Transmission Date: 20120403
  Serious: Yes (Life-Threatening, Hospitalization, Disabling, Other)
  Sender: FDA-Public Use
  Company Number: None

PATIENT
  Weight: 77.1115 kg

DRUGS (3)
  1. TRIAMTERENE AND HYDROCHLOROTHIAZIDE [Suspect]
     Indication: HYPERTENSION
     Dosage: 1/2 TAB MORNINGS DAILY ORAL (DURATION: 6 MONTHS TO YR UNTIL NOW)
     Route: 048
  2. OTC COLD + FLU P.M. MEDICATION [Concomitant]
     Indication: NASOPHARYNGITIS
     Dosage: 2 CAPSULES EVERY 6 HRS ORAL
     Route: 048
  3. OTC COLD + FLU P.M. MEDICATION [Concomitant]
     Indication: INFLUENZA
     Dosage: 2 CAPSULES EVERY 6 HRS ORAL
     Route: 048

REACTIONS (4)
  - HYPERHIDROSIS [None]
  - DEHYDRATION [None]
  - RENAL IMPAIRMENT [None]
  - UNRESPONSIVE TO STIMULI [None]
